FAERS Safety Report 12981541 (Version 1)
Quarter: 2016Q4

REPORT INFORMATION
  Report Type: Spontaneous
  Country: US (occurrence: US)
  Receive Date: 20161129
  Receipt Date: 20161129
  Transmission Date: 20170207
  Serious: Yes (Other)
  Sender: FDA-Public Use
  Company Number: US-CLINIGEN GROUP PLC/ CLINIGEN HEALTHCARE LTD-E2B_00002602

PATIENT
  Age: 60 Year
  Sex: Female
  Weight: 78 kg

DRUGS (4)
  1. RADIATION THERAPY [Suspect]
     Active Substance: RADIATION THERAPY
     Indication: OROPHARYNGEAL CANCER
     Dosage: UNKNOWN  UNKNOWN
     Route: 050
  2. DURAGESIC [Concomitant]
     Active Substance: FENTANYL
     Route: 065
  3. ETHYOL [Suspect]
     Active Substance: AMIFOSTINE
     Indication: DRUG TOXICITY PROPHYLAXIS
     Dosage: UNKNOWN  UNKNOWN
     Route: 042
  4. DIFLUCAN [Concomitant]
     Active Substance: FLUCONAZOLE
     Route: 065

REACTIONS (2)
  - Oedema [Unknown]
  - Cellulitis [Unknown]
